FAERS Safety Report 7238579-7 (Version None)
Quarter: 2011Q1

REPORT INFORMATION
  Report Type: 
  Country: None (occurrence: None)
  Receive Date: 20110119
  Receipt Date: 20110119
  Transmission Date: 20110831
  Serious: Yes (Hospitalization, Other)
  Sender: FDA-Public Use
  Company Number: None

PATIENT
  Age: 66 Year
  Sex: Female
  Weight: 69.4003 kg

DRUGS (1)
  1. AVELOX [Suspect]
     Indication: CARDIAC FAILURE CONGESTIVE
     Dosage: 400MG ONCE DAILY IV BOLUS
     Route: 040
     Dates: start: 20110105, end: 20110107

REACTIONS (4)
  - OEDEMA PERIPHERAL [None]
  - INJECTION SITE EXTRAVASATION [None]
  - TOXIC EPIDERMAL NECROLYSIS [None]
  - NECROSIS [None]
